FAERS Safety Report 14267806 (Version 1)
Quarter: 2017Q4

REPORT INFORMATION
  Report Type: Spontaneous
  Country: US (occurrence: US)
  Receive Date: 20171211
  Receipt Date: 20171211
  Transmission Date: 20180321
  Serious: Yes (Disabling)
  Sender: FDA-Public Use
  Company Number: None

PATIENT
  Age: 55 Year
  Sex: Female
  Weight: 72.45 kg

DRUGS (10)
  1. KIRKLAND MULTIVITAMIN MULTIVITAMIN [Concomitant]
  2. NEOCELL COLLAGEN + C SUPPLEMENT [Concomitant]
  3. LIOTHYRONINE [Concomitant]
     Active Substance: LIOTHYRONINE
  4. ATORVASTATIN 10MG [Suspect]
     Active Substance: ATORVASTATIN
     Indication: BLOOD CHOLESTEROL INCREASED
     Dosage: ?          QUANTITY:1 TABLET(S);?AT BEDTIME  ORAL
     Route: 048
     Dates: start: 20171102, end: 20171128
  5. SYNTHROID [Concomitant]
     Active Substance: LEVOTHYROXINE SODIUM
  6. ORGANIC D3 SUPPLEMENT 5000 IU [Concomitant]
  7. TURMERIC CURCUMIN SUPPLEMENT [Concomitant]
  8. B-12 SUPPLEMENT 5000 [Concomitant]
  9. LEVOCETIRIZINE [Concomitant]
     Active Substance: LEVOCETIRIZINE
  10. VITAMIN C SUPPLEMENT [Concomitant]

REACTIONS (3)
  - Pelvic pain [None]
  - Myalgia [None]
  - Back pain [None]

NARRATIVE: CASE EVENT DATE: 20171123
